FAERS Safety Report 21100286 (Version 9)
Quarter: 2022Q3

REPORT INFORMATION
  Report Type: Report from Study
  Country: MX (occurrence: None)
  Receive Date: 20220719
  Receipt Date: 20220927
  Transmission Date: 20221026
  Serious: Yes (Hospitalization)
  Sender: FDA-Public Use
  Company Number: MX-Eisai Medical Research-EC-2022-119338

PATIENT
  Age: 60 Year
  Sex: Female
  Weight: 105.7 kg

DRUGS (11)
  1. LENVATINIB [Suspect]
     Active Substance: LENVATINIB
     Indication: Clear cell renal cell carcinoma
     Route: 048
     Dates: start: 20220603, end: 20220622
  2. PEMBROLIZUMAB [Suspect]
     Active Substance: PEMBROLIZUMAB
     Indication: Clear cell renal cell carcinoma
     Route: 041
     Dates: start: 20220603, end: 20220603
  3. PEMBROLIZUMAB [Suspect]
     Active Substance: PEMBROLIZUMAB
     Route: 041
     Dates: start: 20220808
  4. BELZUTIFAN [Suspect]
     Active Substance: BELZUTIFAN
     Indication: Clear cell renal cell carcinoma
     Route: 048
     Dates: start: 20220603, end: 20220706
  5. BELZUTIFAN [Suspect]
     Active Substance: BELZUTIFAN
     Route: 048
     Dates: start: 20220808
  6. METOPROLOL [Concomitant]
     Active Substance: METOPROLOL
     Dates: start: 19960306
  7. LOSARTAN [Concomitant]
     Active Substance: LOSARTAN
     Dates: start: 20110907
  8. LEVOTHYROXINE SODIUM [Concomitant]
     Active Substance: LEVOTHYROXINE SODIUM
     Dates: start: 20170725
  9. TRIMETHOPRIM [Concomitant]
     Active Substance: TRIMETHOPRIM
     Dates: start: 20220623, end: 20220629
  10. SULFAMETHOXAZOLE [Concomitant]
     Active Substance: SULFAMETHOXAZOLE
     Dates: start: 20220623, end: 20220629
  11. PHENAZOPYRIDINE HYDROCHLORIDE [Concomitant]
     Active Substance: PHENAZOPYRIDINE HYDROCHLORIDE
     Dates: start: 20220623, end: 20220629

REACTIONS (2)
  - Embolism [Recovered/Resolved]
  - Anaemia [Recovering/Resolving]

NARRATIVE: CASE EVENT DATE: 20220707
